FAERS Safety Report 6947419-2 (Version None)
Quarter: 2010Q3

REPORT INFORMATION
  Report Type: 
  Country: None (occurrence: None)
  Receive Date: 20100827
  Receipt Date: 20090909
  Transmission Date: 20110219
  Serious: No
  Sender: FDA-Public Use
  Company Number: US-ABBOTT-09P-163-0596981-00

PATIENT
  Age: 74 Year

DRUGS (9)
  1. NIASPAN [Suspect]
     Indication: BLOOD CHOLESTEROL INCREASED
     Dates: start: 20090527, end: 20090826
  2. NIASPAN [Suspect]
     Dates: start: 20090826
  3. LISINOPRIL [Concomitant]
     Indication: HYPERTENSION
     Dosage: DAILY
  4. ASPIRIN [Concomitant]
     Indication: PROPHYLAXIS
     Dosage: DAILY
  5. GLUCOSAMINE + CHONDROITIN [Concomitant]
     Indication: SUPPLEMENTATION THERAPY
  6. WARFARIN SODIUM [Concomitant]
     Indication: ATRIAL FIBRILLATION
     Dosage: DAILY
  7. CRESTOR [Concomitant]
     Indication: BLOOD CHOLESTEROL INCREASED
  8. LEVOTHYROXINE [Concomitant]
     Indication: HYPOTHYROIDISM
  9. AMIODARONE [Concomitant]
     Indication: ATRIAL FIBRILLATION

REACTIONS (2)
  - ABSCESS [None]
  - HYPOSMIA [None]
